FAERS Safety Report 22610214 (Version 1)
Quarter: 2023Q2

REPORT INFORMATION
  Report Type: Spontaneous
  Country: US (occurrence: None)
  Receive Date: 20230615
  Receipt Date: 20230615
  Transmission Date: 20230722
  Serious: No
  Sender: FDA-Public Use
  Company Number: None

PATIENT
  Age: 23 Month
  Sex: Female

DRUGS (7)
  1. EVEROLIMUS [Suspect]
     Active Substance: EVEROLIMUS
     Indication: Epilepsy
  2. PHENOBARBITAL [Concomitant]
     Active Substance: PHENOBARBITAL
  3. EPIDIOLEX [Concomitant]
     Active Substance: CANNABIDIOL
  4. CLONAZEPAM [Concomitant]
     Active Substance: CLONAZEPAM
  5. LEVOCARNITINE [Concomitant]
     Active Substance: LEVOCARNITINE
  6. PANTOPRAZOLE SODIUM [Concomitant]
     Active Substance: PANTOPRAZOLE SODIUM
  7. VIGABATRIN [Concomitant]
     Active Substance: VIGABATRIN

REACTIONS (1)
  - Off label use [None]

NARRATIVE: CASE EVENT DATE: 20230614
